FAERS Safety Report 18027440 (Version 5)
Quarter: 2021Q1

REPORT INFORMATION
  Report Type: Spontaneous
  Country: GB (occurrence: GB)
  Receive Date: 20200716
  Receipt Date: 20210217
  Transmission Date: 20210419
  Serious: Yes (Hospitalization, Other)
  Sender: FDA-Public Use
  Company Number: GB-PFIZER INC-2020269619

PATIENT
  Age: 60 Year
  Sex: Female

DRUGS (3)
  1. FULVESTRANT. [Suspect]
     Active Substance: FULVESTRANT
     Dosage: 500 MG, CYCLIC (ON DAYS 1, 15, 29 AND ONCE A MONTH THEREAFTER)
     Route: 030
     Dates: start: 201902
  2. IBRANCE [Suspect]
     Active Substance: PALBOCICLIB
     Dosage: 75 MG, CYCLIC (75 MG) CYCLE 14
  3. IBRANCE [Suspect]
     Active Substance: PALBOCICLIB
     Indication: NEOPLASM MALIGNANT
     Dosage: 125 MG, 1X/DAY
     Dates: start: 201902

REACTIONS (7)
  - Cough [Unknown]
  - Neutropenia [Unknown]
  - Neoplasm progression [Unknown]
  - Pyrexia [Recovered/Resolved]
  - Dyspnoea [Unknown]
  - Fatigue [Unknown]
  - COVID-19 [Recovered/Resolved]

NARRATIVE: CASE EVENT DATE: 20200320
